FAERS Safety Report 9163823 (Version 4)
Quarter: 2013Q3

REPORT INFORMATION
  Report Type: Report from Study
  Country: DE (occurrence: DE)
  Receive Date: 20130314
  Receipt Date: 20130719
  Transmission Date: 20140515
  Serious: Yes (Hospitalization)
  Sender: FDA-Public Use
  Company Number: DE-ABBOTT-13P-062-1061624-00

PATIENT
  Age: 71 Year
  Sex: Male

DRUGS (10)
  1. HUMIRA [Suspect]
     Indication: RHEUMATOID ARTHRITIS
     Route: 058
     Dates: start: 20120903, end: 20130102
  2. HUMIRA [Suspect]
     Dates: start: 20130213
  3. PREDNISOLONE [Concomitant]
     Indication: RHEUMATOID ARTHRITIS
     Dates: start: 20120620
  4. ACTRAPHANE [Concomitant]
     Indication: DIABETES MELLITUS
     Dates: start: 2002
  5. RAMIPRIL [Concomitant]
     Indication: HYPERTENSION
     Dates: start: 2002
  6. TAMSULOISIN [Concomitant]
     Indication: BENIGN PROSTATIC HYPERPLASIA
     Dates: start: 2000
  7. TORSEMIDE [Concomitant]
     Indication: RENAL FAILURE
     Dates: start: 2002
  8. BISOPROLOL [Concomitant]
     Indication: HYPERTENSION
     Dates: start: 2002
  9. ALLOPURINOL [Concomitant]
     Indication: RENAL FAILURE
     Dates: start: 2002
  10. MARCUMAR [Concomitant]
     Indication: PROPHYLAXIS
     Dates: start: 1994

REACTIONS (1)
  - Osteonecrosis [Recovered/Resolved]
